FAERS Safety Report 12490213 (Version 2)
Quarter: 2016Q3

REPORT INFORMATION
  Report Type: Report from Study
  Country: AT (occurrence: AT)
  Receive Date: 20160622
  Receipt Date: 20160725
  Transmission Date: 20161109
  Serious: Yes (Hospitalization)
  Sender: FDA-Public Use
  Company Number: AT-PFIZER INC-2016296479

PATIENT
  Age: 46 Year
  Sex: Female
  Weight: 55 kg

DRUGS (8)
  1. XGEVA [Concomitant]
     Active Substance: DENOSUMAB
     Dosage: 120 MG, CYCLIC (EVERY 4WEEKS)
  2. PALBOCICLIB [Suspect]
     Active Substance: PALBOCICLIB
     Indication: BREAST CANCER METASTATIC
     Dosage: 125 MG, CYCLIC (3WEEKS ON, 1WEEK OFF)
     Route: 048
     Dates: start: 20160416
  3. PARACETAMOL SANDOZ [Concomitant]
     Active Substance: ACETAMINOPHEN
     Dosage: 500 MG, 2X/DAY (MAX. 3X/DAY)
  4. ZOLADEX [Concomitant]
     Active Substance: GOSERELIN ACETATE
     Dosage: UNK, CYCLIC, 1 DF EVERY 4WEEKS
  5. LOVENOX [Concomitant]
     Active Substance: ENOXAPARIN SODIUM
     Dosage: 40 MG, 1X/DAY
     Route: 058
  6. FASLODEX [Concomitant]
     Active Substance: FULVESTRANT
     Dosage: 1 DF, CYCLIC (EVERY 4WEEKS)
     Route: 058
  7. VITAMINS WITH MINERALS [Concomitant]
     Active Substance: MINERALS\VITAMINS
     Dosage: 1 DF, 2X/DAY
  8. VIMOVO [Concomitant]
     Active Substance: ESOMEPRAZOLE MAGNESIUM\NAPROXEN
     Dosage: 1 DF, 2X/DAY (500MG/20MG)

REACTIONS (5)
  - Pneumothorax [Recovered/Resolved]
  - Staphylococcal infection [Recovered/Resolved]
  - Pleural infection [Recovered/Resolved]
  - Peritonitis [Recovered/Resolved]
  - Wound infection [Recovered/Resolved]

NARRATIVE: CASE EVENT DATE: 20160429
